FAERS Safety Report 8151157-0 (Version None)
Quarter: 2012Q1

REPORT INFORMATION
  Report Type: 
  Country: None (occurrence: None)
  Receive Date: 20120220
  Receipt Date: 20120213
  Transmission Date: 20120608
  Serious: Yes (Hospitalization)
  Sender: FDA-Public Use
  Company Number: GB-GLAXOSMITHKLINE-B0760549B

PATIENT
  Sex: Female

DRUGS (16)
  1. ALBUTEROL SULFATE AUTOHALER [Concomitant]
     Indication: ASTHMA
     Dates: start: 19880101
  2. BECLOMETHASONE DIPROPIONATE [Concomitant]
     Indication: ASTHMA
     Dates: start: 19880101
  3. LANSOPRAZOLE [Concomitant]
     Dates: start: 20111025
  4. BENDROFLUAZIDE [Concomitant]
     Indication: HYPERTENSION
  5. NEULASTA [Concomitant]
     Dates: start: 20111021
  6. LAPATINIB [Suspect]
     Indication: BREAST CANCER METASTATIC
     Dosage: 1000MG PER DAY
     Route: 048
     Dates: start: 20111020
  7. DOMPERIDONE [Concomitant]
     Indication: PROPHYLAXIS
     Dates: start: 20111020
  8. PARACETAMOL [Concomitant]
     Indication: PAIN
     Dates: start: 20111021
  9. DOCETAXEL [Suspect]
     Indication: BREAST CANCER METASTATIC
     Dosage: 60MGM2 EVERY 3 WEEKS
     Route: 042
     Dates: start: 20111020
  10. DEXAMETHASONE [Concomitant]
     Indication: PROPHYLAXIS
     Dates: start: 20111019
  11. SUDOCREM [Concomitant]
     Indication: RASH
     Dates: start: 20111105
  12. GRANISETRON [Concomitant]
     Indication: PROPHYLAXIS
     Dates: start: 20111020
  13. LOPERAMIDE HCL [Concomitant]
     Indication: PROPHYLAXIS
     Dates: start: 20111021
  14. FLUCONAZOLE [Concomitant]
     Indication: ANTIFUNGAL PROPHYLAXIS
     Dates: start: 20111024
  15. HEALTH SUPPLEMENT [Concomitant]
     Dates: start: 20111120
  16. LEVOFLOXACIN [Concomitant]
     Indication: ANTIBIOTIC PROPHYLAXIS
     Dates: start: 20111024

REACTIONS (8)
  - RESPIRATORY FAILURE [None]
  - CLOSTRIDIAL INFECTION [None]
  - VOMITING [None]
  - INGUINAL HERNIA STRANGULATED [None]
  - PNEUMONIA [None]
  - ABDOMINAL PAIN [None]
  - PULMONARY OEDEMA [None]
  - SMALL INTESTINAL OBSTRUCTION [None]
